FAERS Safety Report 4499567-7 (Version None)
Quarter: 2004Q4

REPORT INFORMATION
  Report Type: 
  Country: None (occurrence: None)
  Receive Date: 20040928
  Receipt Date: 20040813
  Transmission Date: 20050328
  Serious: No
  Sender: FDA-Public Use
  Company Number: 04P-163-0270563-00

PATIENT
  Age: 70 Year
  Sex: Male
  Weight: 97.5234 kg

DRUGS (5)
  1. HUMIRA [Suspect]
     Indication: RHEUMATOID ARTHRITIS
     Dosage: 40 MG, 1 IN 2 WK, SUBCUTANEOUS
     Route: 058
     Dates: start: 20040101
  2. TELMISARTAN [Concomitant]
  3. TENORTIC [Concomitant]
  4. ASPIRIN [Concomitant]
  5. NAPROXEN [Concomitant]

REACTIONS (2)
  - ARTHRITIS [None]
  - DRUG EFFECT DECREASED [None]
